FAERS Safety Report 5607807-3 (Version None)
Quarter: 2008Q1

REPORT INFORMATION
  Report Type: 
  Country: None (occurrence: None)
  Receive Date: 20080125
  Receipt Date: 20080118
  Transmission Date: 20080703
  Serious: Yes (Hospitalization)
  Sender: FDA-Public Use
  Company Number: AZAIT200800018

PATIENT
  Age: 85 Year
  Sex: Male
  Weight: 66 kg

DRUGS (11)
  1. AZACITIDINE (AZACITIDINE) (INJECTION) [Suspect]
     Indication: MYELODYSPLASTIC SYNDROME
     Dosage: (37.5 MG/M2, DAILY X 7 DAYS), SUBCUTANEOUS
     Route: 058
     Dates: start: 20071214, end: 20071220
  2. ZOFRAN [Concomitant]
  3. GLYSENNID [Concomitant]
  4. UNIPRIL (RAMIPRIL) [Concomitant]
  5. MONOKET [Concomitant]
  6. METOPROLOL TARTRATE [Concomitant]
  7. ALLOPURINOL [Concomitant]
  8. PLASIL (METOCLOPRAMIDE HYDROCHLORIDE) [Concomitant]
  9. PSYLOGEL (PLANTAGO AFRA) [Concomitant]
  10. CARVASIN [Concomitant]
  11. NEXIUM [Concomitant]

REACTIONS (6)
  - ANGINA PECTORIS [None]
  - CONFUSIONAL STATE [None]
  - CONSTIPATION [None]
  - INTESTINAL OBSTRUCTION [None]
  - NO THERAPEUTIC RESPONSE [None]
  - PLEURAL EFFUSION [None]
